FAERS Safety Report 20836203 (Version 1)
Quarter: 2022Q2

REPORT INFORMATION
  Report Type: Spontaneous
  Country: US (occurrence: US)
  Receive Date: 20220516
  Receipt Date: 20220516
  Transmission Date: 20220720
  Serious: Yes (Other)
  Sender: FDA-Public Use
  Company Number: US-BRISTOL-MYERS SQUIBB COMPANY-2022-034140

PATIENT
  Age: 77 Year
  Sex: Female

DRUGS (14)
  1. REVLIMID [Suspect]
     Active Substance: LENALIDOMIDE
     Indication: Plasma cell myeloma
     Route: 048
     Dates: start: 20220112
  2. PREDNISONE [Concomitant]
     Active Substance: PREDNISONE
  3. PREVALITE [Concomitant]
     Active Substance: CHOLESTYRAMINE
  4. WARFARIN SODIUM [Concomitant]
     Active Substance: WARFARIN SODIUM
  5. PANTOPRAZOLE [Concomitant]
     Active Substance: PANTOPRAZOLE
  6. ACYCLOVIR [Concomitant]
     Active Substance: ACYCLOVIR
  7. FERROUS SULFATE [Concomitant]
     Active Substance: FERROUS SULFATE
  8. FUROSEMIDE [Concomitant]
     Active Substance: FUROSEMIDE
  9. LATANOPROST [Concomitant]
     Active Substance: LATANOPROST
  10. SPIRONOLACTONE [Concomitant]
     Active Substance: SPIRONOLACTONE
  11. VITAMIN D2 [Concomitant]
     Active Substance: ERGOCALCIFEROL
  12. CARVEDILOL [Concomitant]
     Active Substance: CARVEDILOL
  13. POTASSIUM CHLORIDE [Concomitant]
     Active Substance: POTASSIUM CHLORIDE
  14. HYDROXYZINE [Concomitant]
     Active Substance: HYDROXYZINE HYDROCHLORIDE

REACTIONS (2)
  - Influenza like illness [Unknown]
  - Hypersensitivity [Unknown]

NARRATIVE: CASE EVENT DATE: 20220401
